FAERS Safety Report 15011146 (Version 1)
Quarter: 2018Q2

REPORT INFORMATION
  Report Type: Spontaneous
  Country: DE (occurrence: DE)
  Receive Date: 20180614
  Receipt Date: 20180614
  Transmission Date: 20180711
  Serious: Yes (Disabling)
  Sender: FDA-Public Use
  Company Number: DE-JNJFOC-20180616435

PATIENT
  Age: 84 Year
  Sex: Male
  Weight: 80 kg

DRUGS (2)
  1. COUMARIN [Concomitant]
     Active Substance: COUMARIN
     Route: 065
  2. XARELTO [Suspect]
     Active Substance: RIVAROXABAN
     Indication: PRODUCT USED FOR UNKNOWN INDICATION
     Route: 048
     Dates: end: 2017

REACTIONS (7)
  - Arthralgia [Recovered/Resolved]
  - Stomatitis [Not Recovered/Not Resolved]
  - Chills [Recovered/Resolved]
  - Rash [Unknown]
  - Ageusia [Not Recovered/Not Resolved]
  - Joint swelling [Recovered/Resolved]
  - Pharyngeal inflammation [Not Recovered/Not Resolved]

NARRATIVE: CASE EVENT DATE: 20160217
